FAERS Safety Report 8719804 (Version 3)
Quarter: 2012Q4

REPORT INFORMATION
  Report Type: 
  Country: JP (occurrence: JP)
  Receive Date: 20120813
  Receipt Date: 20121114
  Transmission Date: 20130627
  Serious: Yes (Hospitalization, Other)
  Sender: FDA-Public Use
  Company Number: PHHY2012JP068975

PATIENT

DRUGS (2)
  1. DESFERAL [Suspect]
     Indication: IRON OVERLOAD
     Dosage: 500 mg, daily
     Route: 030
     Dates: start: 20120801, end: 20120805
  2. DESFERAL [Suspect]
     Dates: start: 20120806

REACTIONS (3)
  - Escherichia infection [Recovering/Resolving]
  - Diarrhoea [Recovering/Resolving]
  - Anal erosion [Recovering/Resolving]
